FAERS Safety Report 5567358-1 (Version None)
Quarter: 2007Q4

REPORT INFORMATION
  Report Type: 
  Country: None (occurrence: None)
  Receive Date: 20071219
  Receipt Date: 20071214
  Transmission Date: 20080405
  Serious: Yes (Other)
  Sender: FDA-Public Use
  Company Number: JP-ABBOTT-07P-087-0429997-00

PATIENT
  Sex: Female

DRUGS (1)
  1. CEFZON [Suspect]
     Indication: STAPHYLOCOCCAL INFECTION
     Route: 065

REACTIONS (6)
  - DIARRHOEA [None]
  - DIZZINESS [None]
  - DIZZINESS POSTURAL [None]
  - FAECES DISCOLOURED [None]
  - GAIT DISTURBANCE [None]
  - INSOMNIA [None]
